FAERS Safety Report 25245252 (Version 2)
Quarter: 2025Q2

REPORT INFORMATION
  Report Type: Report from Study
  Country: US (occurrence: US)
  Receive Date: 20250428
  Receipt Date: 20250515
  Transmission Date: 20250716
  Serious: Yes (Other)
  Sender: ABBVIE
  Company Number: US-ABBVIE-6245254

PATIENT
  Age: 74 Year
  Sex: Male

DRUGS (2)
  1. IMBRUVICA [Suspect]
     Active Substance: IBRUTINIB
     Indication: Central nervous system lymphoma
     Dosage: MISSED DOSE
     Route: 048
     Dates: start: 202504, end: 202504
  2. IMBRUVICA [Suspect]
     Active Substance: IBRUTINIB
     Indication: Central nervous system lymphoma
     Route: 048
     Dates: start: 202504

REACTIONS (13)
  - Acute kidney injury [Recovering/Resolving]
  - Malaise [Unknown]
  - Asthenia [Unknown]
  - Decreased appetite [Unknown]
  - Nausea [Unknown]
  - Discomfort [Unknown]
  - Pain [Unknown]
  - Depression [Unknown]
  - Nervousness [Unknown]
  - Blood pressure fluctuation [Unknown]
  - Off label use [Unknown]
  - Personality change [Unknown]
  - Anxiety [Unknown]

NARRATIVE: CASE EVENT DATE: 20250401
